FAERS Safety Report 10921221 (Version 3)
Quarter: 2015Q2

REPORT INFORMATION
  Report Type: Spontaneous
  Country: FR (occurrence: None)
  Receive Date: 20150312
  Receipt Date: 20150415
  Transmission Date: 20150821
  Serious: Yes (Hospitalization, Other)
  Sender: FDA-Public Use
  Company Number: 2015FE00774

PATIENT
  Age: 88 Year
  Sex: Male

DRUGS (4)
  1. FIRMAGON [Suspect]
     Active Substance: DEGARELIX ACETATE
     Indication: PROSTATE CANCER
     Route: 058
     Dates: start: 20141205, end: 20141205
  2. LANSOPRAZOLE. [Concomitant]
     Active Substance: LANSOPRAZOLE
  3. LASILIX (FUROSEMIDE) [Concomitant]
     Active Substance: FUROSEMIDE
  4. CALCIPARINE (HEPARIN CALCIUM) [Concomitant]

REACTIONS (4)
  - Injection site necrosis [None]
  - Injection site inflammation [None]
  - Rheumatic disorder [None]
  - Dehydration [None]

NARRATIVE: CASE EVENT DATE: 201502
